FAERS Safety Report 5595942-8 (Version None)
Quarter: 2008Q1

REPORT INFORMATION
  Report Type: 
  Country: None (occurrence: None)
  Receive Date: 20080118
  Receipt Date: 20080114
  Transmission Date: 20080703
  Serious: Yes (Hospitalization, Other)
  Sender: FDA-Public Use
  Company Number: US-SANOFI-SYNTHELABO-F01200700286

PATIENT
  Sex: Female
  Weight: 70.3 kg

DRUGS (4)
  1. BEVACIZUMAB [Suspect]
     Route: 041
     Dates: start: 20070103, end: 20070103
  2. DOCETAXEL [Suspect]
     Route: 041
     Dates: start: 20070103, end: 20070103
  3. OXALIPLATIN [Suspect]
     Route: 041
     Dates: start: 20070103, end: 20070103
  4. OXYCODONE [Concomitant]
     Dosage: 5/325 MG UNK
     Route: 065

REACTIONS (3)
  - ABDOMINAL HERNIA [None]
  - IMPAIRED HEALING [None]
  - WOUND EVISCERATION [None]
